FAERS Safety Report 8445204-6 (Version None)
Quarter: 2012Q2

REPORT INFORMATION
  Report Type: 
  Country: None (occurrence: None)
  Receive Date: 20120618
  Receipt Date: 20120614
  Transmission Date: 20120825
  Serious: Yes (Other)
  Sender: FDA-Public Use
  Company Number: US-BAYER-2012-059490

PATIENT
  Age: 42 Year
  Sex: Male

DRUGS (1)
  1. NEXAVAR [Suspect]
     Indication: HEPATIC NEOPLASM MALIGNANT
     Dosage: DAILY DOSE 800 MG, ,
     Dates: start: 20111201

REACTIONS (7)
  - CHEMICAL BURN OF SKIN [None]
  - RASH [None]
  - ERYTHEMA [None]
  - SKIN REACTION [None]
  - FATIGUE [None]
  - SKIN IRRITATION [None]
  - SKIN EXFOLIATION [None]
